FAERS Safety Report 8535107 (Version 6)
Quarter: 2013Q2

REPORT INFORMATION
  Report Type: Report from Study
  Country: DE (occurrence: DE)
  Receive Date: 20120427
  Receipt Date: 20130531
  Transmission Date: 20140414
  Serious: Yes (Hospitalization)
  Sender: FDA-Public Use
  Company Number: DE-ROCHE-1063634

PATIENT
  Age: 74 Year
  Sex: Male
  Weight: 97.5 kg

DRUGS (2)
  1. VEMURAFENIB [Suspect]
     Indication: METASTATIC MALIGNANT MELANOMA
     Dosage: DATE OF LAST DOSE PRIOR TO SAE: 13/APR/2012
     Route: 048
     Dates: start: 20120320, end: 20120414
  2. VEMURAFENIB [Suspect]
     Route: 048
     Dates: start: 20120416

REACTIONS (1)
  - Angioedema [Recovered/Resolved]
